FAERS Safety Report 9785173 (Version 1)
Quarter: 2013Q4

REPORT INFORMATION
  Report Type: Report from Study
  Country: US (occurrence: US)
  Receive Date: 20131227
  Receipt Date: 20131227
  Transmission Date: 20140711
  Serious: Yes (Hospitalization)
  Sender: FDA-Public Use
  Company Number: US-JNJFOC-20131213118

PATIENT
  Age: 45 Year
  Sex: Female
  Weight: 127.01 kg

DRUGS (5)
  1. XARELTO [Suspect]
     Indication: PULMONARY EMBOLISM
     Route: 048
     Dates: start: 201304, end: 20130505
  2. ASPIRIN [Suspect]
     Indication: PRODUCT USED FOR UNKNOWN INDICATION
     Route: 048
  3. METOPROLOL [Concomitant]
     Indication: CARDIAC DISORDER
     Route: 048
  4. LISINOPRIL [Concomitant]
     Indication: CARDIAC DISORDER
     Route: 048
  5. FOLIC ACID [Concomitant]
     Indication: CARDIAC DISORDER
     Route: 048

REACTIONS (4)
  - Menorrhagia [Recovered/Resolved]
  - Mouth haemorrhage [Recovered/Resolved]
  - Vision blurred [Recovered/Resolved]
  - Asthenia [Recovered/Resolved]
